FAERS Safety Report 11559105 (Version 3)
Quarter: 2015Q4

REPORT INFORMATION
  Report Type: Spontaneous
  Country: JP (occurrence: JP)
  Receive Date: 20150928
  Receipt Date: 20151105
  Transmission Date: 20160304
  Serious: Yes (Other)
  Sender: FDA-Public Use
  Company Number: JP-BAYER-2015-425512

PATIENT
  Age: 63 Year
  Sex: Female
  Weight: 71.7 kg

DRUGS (6)
  1. MICAMLO [Concomitant]
     Active Substance: AMLODIPINE BESYLATE\TELMISARTAN
     Indication: HYPERTENSION
     Route: 048
  2. NEXAVAR [Suspect]
     Active Substance: SORAFENIB
     Indication: PAPILLARY THYROID CANCER
     Dosage: DAILY DOSE 800 MG
     Route: 048
     Dates: start: 20150908, end: 20150928
  3. THYRADIN S [Concomitant]
     Active Substance: LEVOTHYROXINE SODIUM
     Indication: HYPOTHYROIDISM
     Dosage: DAILY DOSE 150 ?G
     Route: 048
     Dates: start: 2010
  4. ALFACALCIDOL [Concomitant]
     Active Substance: ALFACALCIDOL
     Indication: HYPOPARATHYROIDISM
     Dosage: DAILY DOSE 3 ?G
     Route: 048
     Dates: start: 2010
  5. NEXAVAR [Suspect]
     Active Substance: SORAFENIB
     Indication: PAPILLARY THYROID CANCER
     Dosage: 800 MG, DAILY
     Route: 048
     Dates: start: 2015, end: 20151021
  6. ALFACALCIDOL [Concomitant]
     Active Substance: ALFACALCIDOL
     Indication: HYPOPARATHYROIDISM
     Dosage: DAILY DOSE .25 ?G
     Route: 048
     Dates: start: 2010

REACTIONS (9)
  - Decreased appetite [Recovered/Resolved]
  - C-reactive protein increased [Not Recovered/Not Resolved]
  - Pyrexia [Recovering/Resolving]
  - Glossitis [Recovered/Resolved]
  - Vomiting [Recovered/Resolved]
  - Hypocalcaemia [Not Recovered/Not Resolved]
  - Amylase increased [Recovered/Resolved]
  - Palmar-plantar erythrodysaesthesia syndrome [Recovering/Resolving]
  - Palmar-plantar erythrodysaesthesia syndrome [Not Recovered/Not Resolved]

NARRATIVE: CASE EVENT DATE: 20150910
